FAERS Safety Report 10078896 (Version 1)
Quarter: 2014Q2

REPORT INFORMATION
  Report Type: Spontaneous
  Country: CL (occurrence: CL)
  Receive Date: 20140415
  Receipt Date: 20140415
  Transmission Date: 20141212
  Serious: Yes (Other)
  Sender: FDA-Public Use
  Company Number: CL-BIOMARINAP-CL-2014-102981

PATIENT
  Age: 3 Year
  Sex: Female
  Weight: 10 kg

DRUGS (1)
  1. ALDURAZYME [Suspect]
     Indication: MUCOPOLYSACCHARIDOSIS I
     Dosage: 0.58 MG/KG, UNK
     Route: 042
     Dates: start: 201402

REACTIONS (3)
  - Convulsion [Not Recovered/Not Resolved]
  - Sinusitis [Not Recovered/Not Resolved]
  - Pyrexia [Unknown]
